FAERS Safety Report 24550318 (Version 1)
Quarter: 2024Q4

REPORT INFORMATION
  Report Type: Spontaneous
  Country: US (occurrence: None)
  Receive Date: 20241025
  Receipt Date: 20241025
  Transmission Date: 20250114
  Serious: Yes (Life-Threatening)
  Sender: Public
  Company Number: None

PATIENT
  Age: 85 Year
  Sex: Female

DRUGS (1)
  1. INBRIJA [Suspect]
     Active Substance: LEVODOPA
     Indication: Parkinson^s disease
     Dosage: OTHER FREQUENCY : 5 TIMES PER DAY;?
     Route: 048
     Dates: start: 20240820, end: 20241010

REACTIONS (1)
  - Hallucination [None]

NARRATIVE: CASE EVENT DATE: 20241010
